FAERS Safety Report 5632427-4 (Version None)
Quarter: 2008Q1

REPORT INFORMATION
  Report Type: 
  Country: None (occurrence: None)
  Receive Date: 20080220
  Receipt Date: 20070917
  Transmission Date: 20080703
  Serious: No
  Sender: FDA-Public Use
  Company Number: US-ASTRAZENECA-2007UW21881

PATIENT
  Sex: Female

DRUGS (2)
  1. FELODIPINE [Suspect]
     Route: 048
  2. LISINOPRIL [Suspect]
     Route: 048

REACTIONS (2)
  - ILL-DEFINED DISORDER [None]
  - SWELLING [None]
